FAERS Safety Report 8555364-4 (Version None)
Quarter: 2012Q3

REPORT INFORMATION
  Report Type: 
  Country: None (occurrence: None)
  Receive Date: 20120731
  Receipt Date: 20110712
  Transmission Date: 20120928
  Serious: No
  Sender: FDA-Public Use
  Company Number: US-ASTRAZENECA-2011SE33685

PATIENT
  Age: 68 Year
  Sex: Male
  Weight: 97.5 kg

DRUGS (4)
  1. SEROQUEL [Suspect]
     Indication: SLEEP DISORDER
     Route: 048
     Dates: start: 20080101
  2. BENICAR [Concomitant]
     Indication: HYPERTENSION
  3. SEROQUEL [Suspect]
     Dosage: TWO OF 300 MG TABLETS OR SOMTIMES THREE
     Route: 048
  4. ATIVAN [Concomitant]

REACTIONS (3)
  - INSOMNIA [None]
  - OFF LABEL USE [None]
  - INCORRECT DOSE ADMINISTERED [None]
